FAERS Safety Report 4500317-6 (Version None)
Quarter: 2004Q4

REPORT INFORMATION
  Report Type: 
  Country: None (occurrence: None)
  Receive Date: 20041109
  Receipt Date: 20041027
  Transmission Date: 20050328
  Serious: Yes (Death)
  Sender: FDA-Public Use
  Company Number: MC200400747

PATIENT
  Age: 62 Year
  Sex: Female
  Weight: 113.4 kg

DRUGS (1)
  1. ANGIOMAX [Suspect]
     Dosage: SEE IMAGE

REACTIONS (6)
  - CARDIAC ARREST [None]
  - COAGULATION TIME SHORTENED [None]
  - FALL [None]
  - HYPOTENSION [None]
  - RETROPERITONEAL HAEMORRHAGE [None]
  - VENTRICULAR TACHYCARDIA [None]
